FAERS Safety Report 6008889-X (Version None)
Quarter: 2008Q4

REPORT INFORMATION
  Report Type: 
  Country: None (occurrence: None)
  Receive Date: 20081217
  Receipt Date: 20081210
  Transmission Date: 20090506
  Serious: Yes (Hospitalization)
  Sender: FDA-Public Use
  Company Number: PHHO2008JP14192

PATIENT
  Sex: Female
  Weight: 34 kg

DRUGS (7)
  1. EXELON [Suspect]
     Indication: DEMENTIA ALZHEIMER'S TYPE
     Dosage: UNK
     Route: 062
     Dates: start: 20080215, end: 20081126
  2. PURSENNID [Suspect]
     Indication: CONSTIPATION
     Dosage: 12 MG, UNK
     Route: 048
     Dates: start: 20080118
  3. AMAZOLON [Suspect]
     Indication: DEMENTIA ALZHEIMER'S TYPE
     Dosage: 150 MG, UNK
     Route: 048
     Dates: start: 20080704, end: 20081125
  4. AMLODIN [Suspect]
     Indication: HYPERTENSION
     Dosage: 2.5 MG, UNK
     Route: 048
     Dates: start: 20070419, end: 20081125
  5. ENSURE [Suspect]
     Indication: CACHEXIA
     Dosage: 250 ML, UNK
     Route: 048
     Dates: start: 20070913, end: 20081125
  6. GASCON [Suspect]
     Indication: CONSTIPATION
     Dosage: 40 MG, UNK
     Route: 048
     Dates: start: 20080118
  7. GARASONE [Suspect]
     Indication: DERMATITIS CONTACT
     Dosage: UNK
     Dates: start: 20081024, end: 20081125

REACTIONS (7)
  - CONSTIPATION [None]
  - GASTROINTESTINAL HYPOMOTILITY [None]
  - GASTROINTESTINAL INFECTION [None]
  - INFECTION [None]
  - INFREQUENT BOWEL MOVEMENTS [None]
  - NAUSEA [None]
  - VOMITING [None]
